FAERS Safety Report 8051578-0 (Version None)
Quarter: 2012Q1

REPORT INFORMATION
  Report Type: 
  Country: None (occurrence: None)
  Receive Date: 20120117
  Receipt Date: 20120104
  Transmission Date: 20120608
  Serious: Yes (Hospitalization)
  Sender: FDA-Public Use
  Company Number: BE-AMGEN-BELCT2011067494

PATIENT
  Age: 56 Year
  Sex: Female

DRUGS (29)
  1. EZETIMIBE/SIMVASTATIN [Concomitant]
     Dosage: UNK
  2. COZAAR [Concomitant]
     Dosage: UNK
     Route: 048
  3. TRAUMEEL S                         /01124601/ [Suspect]
     Dosage: UNK
     Route: 048
  4. DAFLON [Concomitant]
     Dosage: 500 MG, 2X/DAY
     Route: 048
  5. MEDROL [Concomitant]
     Indication: RHEUMATOID ARTHRITIS
     Dosage: 4 MG, UNK
     Route: 048
  6. METHOTREXATE [Concomitant]
     Dosage: 10 MG, WEEKLY
     Route: 048
  7. ETANERCEPT [Suspect]
     Indication: RHEUMATOID ARTHRITIS
     Dosage: 50 MG, QWK
     Route: 058
     Dates: start: 20081016
  8. DAFLON                             /00426001/ [Concomitant]
     Dosage: 500 MG, 2X/DAY
     Route: 048
  9. DUOVENT [Concomitant]
     Dosage: UNK
     Route: 055
  10. INDERAL LA [Concomitant]
     Dosage: 160 MG, 1X/DAY
     Route: 048
  11. LASIX [Concomitant]
     Dosage: 40 MG, 2X/DAY
     Route: 048
  12. ACETAMINOPHEN [Concomitant]
     Dosage: 1 G, 3X/DAY
     Route: 048
  13. LORAZEPAM [Concomitant]
     Dosage: 8.75 MG, 1X/DAY
  14. D-CURE [Concomitant]
     Dosage: UNK
     Route: 048
  15. MOTILIUM [Concomitant]
     Dosage: UNK
     Route: 048
  16. METHOTREXATE [Concomitant]
     Dosage: 10 MG, WEEKLY
     Route: 048
  17. DURAGESIC-100 [Concomitant]
     Dosage: 50 UG, CYCLIC
  18. MYOLASTAN [Concomitant]
     Dosage: 100 MG, 1X/DAY
  19. OMEPRAZOLE [Concomitant]
     Dosage: 20 MG, 2X/DAY
     Route: 048
  20. MOTILIUM                           /00498201/ [Concomitant]
     Dosage: UNK
     Route: 048
  21. LASIX [Concomitant]
     Dosage: 40 MG, 2X/DAY
     Route: 048
  22. ASPIRIN [Concomitant]
     Dosage: 100 MG, 1X/DAY
     Route: 048
  23. INDERAL [Concomitant]
     Dosage: 160 MG, 1X/DAY
     Route: 048
  24. ESCITALOPRAM [Concomitant]
     Dosage: 10 MG, 2X/DAY
  25. LACTULOSE [Concomitant]
     Dosage: UNK
     Route: 048
  26. LYSOMUCIL [Concomitant]
     Dosage: 600 MG, 2X/DAY
  27. TRAUMEEL S [Concomitant]
     Dosage: UNK
     Route: 048
  28. NOVOLOG MIX 70/30 [Concomitant]
     Dosage: UNK
  29. MEDROL [Concomitant]
     Indication: RHEUMATOID ARTHRITIS
     Dosage: 4 MG, UNK
     Route: 048

REACTIONS (2)
  - SQUAMOUS CELL CARCINOMA [None]
  - PNEUMOTHORAX [None]
